FAERS Safety Report 19618766 (Version 1)
Quarter: 2021Q3

REPORT INFORMATION
  Report Type: Spontaneous
  Country: US (occurrence: US)
  Receive Date: 20210727
  Receipt Date: 20210727
  Transmission Date: 20211014
  Serious: No
  Sender: FDA-Public Use
  Company Number: US-ROCHE-2769069

PATIENT
  Age: 66 Year
  Sex: Male

DRUGS (2)
  1. XELODA [Suspect]
     Active Substance: CAPECITABINE
     Indication: PRODUCT USED FOR UNKNOWN INDICATION
     Route: 048
     Dates: start: 202102
  2. OXALIPLATIN. [Concomitant]
     Active Substance: OXALIPLATIN

REACTIONS (10)
  - Temperature intolerance [Unknown]
  - Diarrhoea [Unknown]
  - Fatigue [Unknown]
  - Blood potassium decreased [Unknown]
  - Muscle spasms [Unknown]
  - Somnolence [Unknown]
  - Vomiting [Unknown]
  - Nausea [Unknown]
  - Palmar-plantar erythrodysaesthesia syndrome [Unknown]
  - Neuropathy peripheral [Unknown]

NARRATIVE: CASE EVENT DATE: 20210204
